FAERS Safety Report 7955318-2 (Version None)
Quarter: 2011Q4

REPORT INFORMATION
  Report Type: 
  Country: None (occurrence: None)
  Receive Date: 20111202
  Receipt Date: 20111121
  Transmission Date: 20120403
  Serious: Yes (Life-Threatening, Other)
  Sender: FDA-Public Use
  Company Number: US-JNJFOC-20111111575

PATIENT
  Age: 21 Year
  Sex: Female

DRUGS (2)
  1. PSEUDOEPHEDRINE HCL [Suspect]
     Route: 065
  2. PSEUDOEPHEDRINE HCL [Suspect]
     Indication: NASOPHARYNGITIS
     Route: 065

REACTIONS (1)
  - HEAT STROKE [None]
